FAERS Safety Report 11833643 (Version 1)
Quarter: 2015Q4

REPORT INFORMATION
  Report Type: Report from Study
  Country: BR (occurrence: BR)
  Receive Date: 20151214
  Receipt Date: 20151214
  Transmission Date: 20160305
  Serious: Yes (Other)
  Sender: FDA-Public Use
  Company Number: BR-BRISTOL-MYERS SQUIBB COMPANY-BMS-2015-067756

PATIENT
  Sex: Male

DRUGS (4)
  1. DASATINIB [Suspect]
     Active Substance: DASATINIB
     Indication: CHRONIC MYELOID LEUKAEMIA
     Dosage: 100 MG, QD
     Route: 048
     Dates: start: 20150818
  2. DASATINIB [Suspect]
     Active Substance: DASATINIB
     Dosage: 20 MG, QID
     Route: 048
  3. DASATINIB [Suspect]
     Active Substance: DASATINIB
     Dosage: 80 MG, QD
     Route: 048
     Dates: start: 20150815
  4. PARACETAMOL [Concomitant]
     Active Substance: ACETAMINOPHEN
     Indication: PAIN
     Dosage: 500 MG, TID
     Route: 065

REACTIONS (5)
  - Transfusion [Unknown]
  - Pain [Unknown]
  - Back pain [Unknown]
  - Blood count abnormal [Unknown]
  - Neutrophil count decreased [Recovering/Resolving]
